FAERS Safety Report 8136492-4 (Version None)
Quarter: 2012Q1

REPORT INFORMATION
  Report Type: 
  Country: None (occurrence: None)
  Receive Date: 20120214
  Receipt Date: 20120131
  Transmission Date: 20120608
  Serious: Yes (Other)
  Sender: FDA-Public Use
  Company Number: US-UCBSA-050908

PATIENT
  Sex: Female
  Weight: 65 kg

DRUGS (3)
  1. KEPPRA [Suspect]
     Indication: COMPLEX PARTIAL SEIZURES
     Route: 048
  2. FOLIC ACID [Concomitant]
     Indication: PREGNANCY
     Dates: start: 20111201
  3. MULTI-VITAMINS [Concomitant]
     Indication: PREGNANCY
     Dates: start: 20111201

REACTIONS (3)
  - UMBILICAL CORD SHORT [None]
  - FOETAL DEATH [None]
  - PREGNANCY [None]
